FAERS Safety Report 24839544 (Version 1)
Quarter: 2025Q1

REPORT INFORMATION
  Report Type: Report from Study
  Country: CO (occurrence: CO)
  Receive Date: 20250114
  Receipt Date: 20250114
  Transmission Date: 20250409
  Serious: Yes (Hospitalization, Other)
  Sender: ABBVIE
  Company Number: CO-ABBVIE-6079465

PATIENT
  Age: 78 Year
  Sex: Female

DRUGS (1)
  1. VENCLEXTA [Suspect]
     Active Substance: VENETOCLAX
     Indication: Acute myeloid leukaemia
     Route: 048
     Dates: start: 20241004, end: 20241226

REACTIONS (8)
  - Chills [Recovering/Resolving]
  - Pyrexia [Unknown]
  - Headache [Recovering/Resolving]
  - Inflammation [Unknown]
  - Kidney infection [Unknown]
  - Aneurysm [Unknown]
  - Peripheral swelling [Unknown]
  - Pneumonia [Unknown]

NARRATIVE: CASE EVENT DATE: 20241224
